FAERS Safety Report 7608627 (Version 2)
Quarter: 2013Q2

REPORT INFORMATION
  Report Type: Report from Study
  Country: US (occurrence: US)
  Receive Date: 20100927
  Receipt Date: 20130515
  Transmission Date: 20140414
  Serious: Yes (Other)
  Sender: FDA-Public Use
  Company Number: US-RB-013974-10

PATIENT
  Age: 37 Year
  Sex: Male

DRUGS (4)
  1. SUBOXONE TABLET [Suspect]
     Indication: DRUG DEPENDENCE
     Route: 065
     Dates: start: 2010
  2. SUBOXONE TABLET [Suspect]
     Route: 060
     Dates: end: 2012
  3. SUBOXONE FILM [Suspect]
     Indication: DRUG DEPENDENCE
     Dosage: SUBOXONE FILM
     Route: 060
     Dates: start: 2012
  4. METHADONE [Suspect]
     Indication: DRUG DEPENDENCE
     Dosage: DOSING DETAILS UNKNOWN
     Route: 065
     Dates: end: 2010

REACTIONS (7)
  - Self-injurious ideation [Recovered/Resolved]
  - Condition aggravated [Recovered/Resolved]
  - Drug withdrawal syndrome [Recovered/Resolved]
  - Anger [Recovered/Resolved]
  - Condition aggravated [Recovered/Resolved]
  - Agitation [Recovered/Resolved]
  - Constipation [Recovering/Resolving]
